FAERS Safety Report 8107268-9 (Version None)
Quarter: 2012Q1

REPORT INFORMATION
  Report Type: 
  Country: None (occurrence: None)
  Receive Date: 20120202
  Receipt Date: 20120127
  Transmission Date: 20120608
  Serious: Yes (Other)
  Sender: FDA-Public Use
  Company Number: IT-PFIZER INC-2012024059

PATIENT
  Age: 38 Year
  Sex: Male

DRUGS (2)
  1. LYRICA [Suspect]
     Indication: NEURITIS
     Dosage: 75 MG DAILY
     Route: 048
     Dates: start: 20120116, end: 20120120
  2. METRONIDAZOLE [Suspect]
     Indication: TRICHOMONIASIS INTESTINAL
     Dosage: 1000 MG DAILY
     Route: 048
     Dates: start: 20120116, end: 20120120

REACTIONS (2)
  - HYPERTRANSAMINASAEMIA [None]
  - GAMMA-GLUTAMYLTRANSFERASE INCREASED [None]
